FAERS Safety Report 7559558-6 (Version None)
Quarter: 2011Q2

REPORT INFORMATION
  Report Type: 
  Country: None (occurrence: None)
  Receive Date: 20110621
  Receipt Date: 20110614
  Transmission Date: 20111010
  Serious: Yes (Death, Other)
  Sender: FDA-Public Use
  Company Number: DE-CELGENEUS-062-50794-11062276

PATIENT
  Age: 50 Year
  Sex: Female

DRUGS (2)
  1. PREDNISOLONE [Concomitant]
     Route: 065
  2. VIDAZA [Suspect]
     Route: 065

REACTIONS (2)
  - SEPTIC SHOCK [None]
  - PNEUMONIA [None]
